FAERS Safety Report 10727813 (Version 2)
Quarter: 2015Q1

REPORT INFORMATION
  Report Type: Spontaneous
  Country: JP (occurrence: JP)
  Receive Date: 20150121
  Receipt Date: 20150220
  Transmission Date: 20150721
  Serious: Yes (Death)
  Sender: FDA-Public Use
  Company Number: JP-RB PHARMACEUTICALS LIMITED-RB-74679-2014

PATIENT
  Age: 85 Year
  Sex: Female

DRUGS (2)
  1. LEPETAN [Suspect]
     Active Substance: BUPRENORPHINE HYDROCHLORIDE
     Dosage: UNK
     Route: 051
  2. LEPETAN [Suspect]
     Active Substance: BUPRENORPHINE HYDROCHLORIDE
     Indication: PAIN MANAGEMENT
     Dosage: 2.4 MG, DAILY (TWICE DAILY SIX 0.2 MG AMPULES DILUTED IN 50 ML)
     Route: 051

REACTIONS (3)
  - Prescribed overdose [Unknown]
  - Death [Fatal]
  - Wrong technique in drug usage process [Unknown]
